FAERS Safety Report 9637397 (Version 1)
Quarter: 2013Q4

REPORT INFORMATION
  Report Type: Spontaneous
  Country: US (occurrence: US)
  Receive Date: 20131022
  Receipt Date: 20131022
  Transmission Date: 20140711
  Serious: No
  Sender: FDA-Public Use
  Company Number: US-009507513-1310USA006878

PATIENT
  Age: 61 Year
  Sex: Female

DRUGS (8)
  1. VICTRELIS [Suspect]
     Indication: HEPATITIS C
     Dosage: 800 MG, TID
     Route: 048
     Dates: start: 20130921
  2. PEGASYS [Suspect]
  3. RIBASPHERE [Concomitant]
  4. ADVIL [Concomitant]
  5. AMLODIPINE [Concomitant]
  6. FUROSEMIDE [Concomitant]
  7. VITAMINS (UNSPECIFIED) [Concomitant]
  8. SPIRONOLACTONE [Concomitant]

REACTIONS (2)
  - Dysgeusia [Unknown]
  - Dysphonia [Unknown]
